FAERS Safety Report 22074590 (Version 1)
Quarter: 2023Q1

REPORT INFORMATION
  Report Type: Spontaneous
  Country: US (occurrence: US)
  Receive Date: 20230308
  Receipt Date: 20230308
  Transmission Date: 20230418
  Serious: Yes (Other)
  Sender: FDA-Public Use
  Company Number: US-002147023-NVSC2023US050769

PATIENT
  Sex: Female

DRUGS (4)
  1. ENTRESTO [Suspect]
     Active Substance: SACUBITRIL\VALSARTAN
     Indication: Product used for unknown indication
     Dosage: UNK
     Route: 065
  2. BENLYSTA [Suspect]
     Active Substance: BELIMUMAB
     Indication: Systemic lupus erythematosus
     Dosage: UNK
     Route: 065
     Dates: start: 2017
  3. BENLYSTA [Suspect]
     Active Substance: BELIMUMAB
     Dosage: UNK
     Route: 042
     Dates: start: 201901
  4. PLAQUENIL [Suspect]
     Active Substance: HYDROXYCHLOROQUINE SULFATE
     Indication: Systemic lupus erythematosus
     Dosage: UNK
     Route: 065

REACTIONS (12)
  - Impaired gastric emptying [Unknown]
  - Loss of consciousness [Unknown]
  - Vitamin B12 deficiency [Unknown]
  - Eating disorder [Unknown]
  - Memory impairment [Unknown]
  - Balance disorder [Unknown]
  - Aphasia [Unknown]
  - Dyspnoea [Unknown]
  - Oesophageal achalasia [Unknown]
  - Regurgitation [Unknown]
  - Nasal congestion [Unknown]
  - Product prescribing error [Unknown]
